FAERS Safety Report 7721964-4 (Version None)
Quarter: 2011Q3

REPORT INFORMATION
  Report Type: 
  Country: None (occurrence: None)
  Receive Date: 20110831
  Receipt Date: 20110829
  Transmission Date: 20111222
  Serious: Yes (Other)
  Sender: FDA-Public Use
  Company Number: US-PFIZER INC-2011201040

PATIENT
  Sex: Male

DRUGS (1)
  1. EPLERENONE [Suspect]
     Dosage: UNK

REACTIONS (1)
  - BLOOD PRESSURE INCREASED [None]
